FAERS Safety Report 5204187-2 (Version None)
Quarter: 2007Q1

REPORT INFORMATION
  Report Type: 
  Country: None (occurrence: None)
  Receive Date: 20070110
  Receipt Date: 20060104
  Transmission Date: 20070707
  Serious: No
  Sender: FDA-Public Use
  Company Number: US-BRISTOL-MYERS SQUIBB COMPANY-13236245

PATIENT
  Age: 46 Year
  Sex: Female
  Weight: 61 kg

DRUGS (2)
  1. ABILIFY [Suspect]
     Indication: MENTAL DISORDER
     Dates: start: 20050301
  2. NEURONTIN [Concomitant]

REACTIONS (2)
  - ALOPECIA [None]
  - INSOMNIA [None]
